FAERS Safety Report 7075081-X (Version None)
Quarter: 2010Q4

REPORT INFORMATION
  Report Type: 
  Country: None (occurrence: None)
  Receive Date: 20101029
  Receipt Date: 20100413
  Transmission Date: 20110411
  Serious: No
  Sender: FDA-Public Use
  Company Number: US-WYE-H14657910

PATIENT
  Age: 30 Year
  Sex: Female
  Weight: 103.06 kg

DRUGS (1)
  1. ALAVERT [Suspect]
     Indication: SEASONAL ALLERGY
     Route: 048
     Dates: start: 20100405, end: 20100412

REACTIONS (1)
  - DRUG INEFFECTIVE [None]
